FAERS Safety Report 18462088 (Version 2)
Quarter: 2020Q4

REPORT INFORMATION
  Report Type: Spontaneous
  Country: US (occurrence: US)
  Receive Date: 20201104
  Receipt Date: 20201216
  Transmission Date: 20210114
  Serious: No
  Sender: FDA-Public Use
  Company Number: US-ASTRAZENECA-2020SF31768

PATIENT
  Age: 50 Year
  Sex: Male
  Weight: 113.4 kg

DRUGS (2)
  1. SYMBICORT [Suspect]
     Active Substance: BUDESONIDE\FORMOTEROL FUMARATE DIHYDRATE
     Indication: ASTHMA
     Dosage: 80/4.5 MCG. TWO PUFFS, TWO TIMES A DAY
     Route: 055
     Dates: start: 2010
  2. ALBUTEROL. [Concomitant]
     Active Substance: ALBUTEROL

REACTIONS (5)
  - Dizziness [Not Recovered/Not Resolved]
  - Intentional device misuse [Recovered/Resolved]
  - Asthma [Recovered/Resolved]
  - Middle insomnia [Recovered/Resolved]
  - Device defective [Unknown]

NARRATIVE: CASE EVENT DATE: 202009
